FAERS Safety Report 16502740 (Version 2)
Quarter: 2020Q1

REPORT INFORMATION
  Report Type: Report from Study
  Country: DE (occurrence: DE)
  Receive Date: 20190701
  Receipt Date: 20200212
  Transmission Date: 20200409
  Serious: Yes (Other)
  Sender: FDA-Public Use
  Company Number: PHHY2019DE127431

PATIENT
  Sex: Male
  Weight: 84 kg

DRUGS (21)
  1. COSENTYX [Suspect]
     Active Substance: SECUKINUMAB
     Dosage: 300MGUNK, ONCE/SINGLE (PRE-FILLED PEN)
     Route: 065
     Dates: start: 20181213, end: 20181213
  2. COSENTYX [Suspect]
     Active Substance: SECUKINUMAB
     Dosage: 300 MG, ONCE/SINGLE(PRE-FILLEDPEN)
     Route: 065
     Dates: start: 20190117, end: 20190117
  3. COSENTYX [Suspect]
     Active Substance: SECUKINUMAB
     Dosage: 300 MG, ONCE/SINGLE (PRE-FILLED PEN)
     Route: 065
     Dates: start: 20190314, end: 20190314
  4. COSENTYX [Suspect]
     Active Substance: SECUKINUMAB
     Dosage: 300 MG, ONCE/SINGLE (PRE-FILLED PEN)
     Route: 065
     Dates: start: 20190502, end: 20190502
  5. PRADAXA [Concomitant]
     Active Substance: DABIGATRAN ETEXILATE MESYLATE
     Indication: PLATELET AGGREGATION INHIBITION
     Dosage: 150 MG, BID
     Route: 048
     Dates: start: 201605
  6. COSENTYX [Suspect]
     Active Substance: SECUKINUMAB
     Dosage: 300 MG, ONCE/SINGLE (PRE-FILLED PEN)
     Route: 065
     Dates: start: 20180529
  7. COSENTYX [Suspect]
     Active Substance: SECUKINUMAB
     Dosage: 300 MG, ONCE/SINGLE (PRE-FILLED PEN)
     Route: 065
     Dates: start: 20181120, end: 20181120
  8. COSENTYX [Suspect]
     Active Substance: SECUKINUMAB
     Dosage: 300 MG, ONCE/SINGLE (PRE-FILLED PEN)
     Route: 065
     Dates: start: 20190214, end: 20190214
  9. COSENTYX [Suspect]
     Active Substance: SECUKINUMAB
     Dosage: 300 MG, ONCE/SINGLE (PRE-FILLED PEN)
     Route: 065
     Dates: start: 20180703
  10. COSENTYX [Suspect]
     Active Substance: SECUKINUMAB
     Dosage: 300 MG, ONCE/SINGLE (PRE-FILLED PEN)
     Route: 065
     Dates: start: 20180925
  11. ENTRESTO [Concomitant]
     Active Substance: SACUBITRIL\VALSARTAN
     Indication: CONGESTIVE CARDIOMYOPATHY
     Dosage: 1 DF (97/103 MG), BID
     Route: 048
     Dates: start: 201605
  12. NEBIVOLOL. [Concomitant]
     Active Substance: NEBIVOLOL
     Indication: CONGESTIVE CARDIOMYOPATHY
     Dosage: 5 MG, QD
     Route: 048
     Dates: start: 201605
  13. COSENTYX [Suspect]
     Active Substance: SECUKINUMAB
     Indication: PSORIATIC ARTHROPATHY
     Dosage: 300 MG, ONCE/SINGLE (PRE-FILLED PEN)
     Route: 065
     Dates: start: 20180515
  14. COSENTYX [Suspect]
     Active Substance: SECUKINUMAB
     Dosage: 300 MG, ONCE/SINGLE (PRE-FILLED PEN)
     Route: 065
     Dates: start: 20180522
  15. COSENTYX [Suspect]
     Active Substance: SECUKINUMAB
     Dosage: 300 MG, ONCE/SINGLE (PRE-FILLED PEN)
     Route: 065
     Dates: start: 20181023
  16. EPLERENONE. [Concomitant]
     Active Substance: EPLERENONE
     Indication: CONGESTIVE CARDIOMYOPATHY
     Dosage: 25 MG, QD
     Route: 048
     Dates: start: 2016
  17. COSENTYX [Suspect]
     Active Substance: SECUKINUMAB
     Dosage: 300 MG, ONCE/SINGLE (PRE-FILLED PEN)
     Route: 065
     Dates: start: 20180605
  18. COSENTYX [Suspect]
     Active Substance: SECUKINUMAB
     Dosage: 300 MG, ONCE/SINGLE (PRE-FILLED PEN)
     Route: 065
     Dates: start: 20180731
  19. COSENTYX [Suspect]
     Active Substance: SECUKINUMAB
     Dosage: 300 MG, ONCE/SINGLE (PRE-FILLED PEN)
     Route: 065
     Dates: start: 20180828
  20. COSENTYX [Suspect]
     Active Substance: SECUKINUMAB
     Dosage: 300 MG, ONCE/SINGLE (PRE-FILLED PEN)
     Route: 065
     Dates: start: 20190404, end: 20190404
  21. TERBINAFIN [Concomitant]
     Active Substance: TERBINAFINE
     Indication: ECZEMA
     Dosage: 250 MG, QD
     Route: 048
     Dates: start: 20181009, end: 20181112

REACTIONS (2)
  - Cardiac failure [Unknown]
  - Concomitant disease aggravated [Unknown]

NARRATIVE: CASE EVENT DATE: 201903
